FAERS Safety Report 5530679-2 (Version None)
Quarter: 2007Q4

REPORT INFORMATION
  Report Type: 
  Country: None (occurrence: None)
  Receive Date: 20071130
  Receipt Date: 20071121
  Transmission Date: 20080405
  Serious: Yes (Other)
  Sender: FDA-Public Use
  Company Number: JP-ASTRAZENECA-2007AP07539

PATIENT
  Age: 861 Month
  Sex: Male

DRUGS (8)
  1. OMEPRAZON [Suspect]
     Indication: REFLUX OESOPHAGITIS
     Route: 048
     Dates: start: 20061227, end: 20071109
  2. NORVASC [Concomitant]
     Route: 048
  3. OLMETEC [Concomitant]
     Route: 048
     Dates: start: 20061227
  4. GLYSENNID [Concomitant]
     Route: 048
     Dates: end: 20070601
  5. GLYSENNID [Concomitant]
     Route: 048
     Dates: start: 20070601
  6. KAMAG G [Concomitant]
     Route: 048
     Dates: start: 20061227, end: 20070601
  7. KAMAG G [Concomitant]
     Route: 048
     Dates: start: 20070601
  8. RABEPRAZOLE SODIUM [Concomitant]
     Indication: DYSPEPSIA

REACTIONS (2)
  - DELIRIUM [None]
  - NIGHTMARE [None]
